FAERS Safety Report 5139248-X (Version None)
Quarter: 2006Q4

REPORT INFORMATION
  Report Type: 
  Country: None (occurrence: None)
  Receive Date: 20061030
  Receipt Date: 20061020
  Transmission Date: 20070319
  Serious: Yes (Hospitalization, Other)
  Sender: FDA-Public Use
  Company Number: US-JNJFOC-20060307907

PATIENT
  Sex: Male
  Weight: 46.5 kg

DRUGS (6)
  1. RISPERDAL [Suspect]
     Route: 048
  2. RISPERDAL [Suspect]
     Route: 048
  3. RISPERDAL [Suspect]
     Indication: BIPOLAR DISORDER
     Route: 048
  4. ZYPREXA [Suspect]
     Indication: DRUG USE FOR UNKNOWN INDICATION
  5. COGENTIN [Concomitant]
  6. RITALIN [Concomitant]

REACTIONS (5)
  - DIABETES MELLITUS INSULIN-DEPENDENT [None]
  - HOMICIDAL IDEATION [None]
  - HYPOTHYROIDISM [None]
  - SUICIDE ATTEMPT [None]
  - WEIGHT INCREASED [None]
